FAERS Safety Report 15106288 (Version 1)
Quarter: 2018Q3

REPORT INFORMATION
  Report Type: Spontaneous
  Country: US (occurrence: US)
  Receive Date: 20180704
  Receipt Date: 20180704
  Transmission Date: 20181010
  Serious: No
  Sender: FDA-Public Use
  Company Number: US-GLENMARK PHARMACEUTICALS-2017GMK029714

PATIENT

DRUGS (10)
  1. MUPIROCIN. [Suspect]
     Active Substance: MUPIROCIN
     Indication: NASAL DISCOMFORT
     Dosage: UNK, OD (INTRANASAL)
     Route: 045
     Dates: start: 2017, end: 20171104
  2. PRAVASTATIN. [Concomitant]
     Active Substance: PRAVASTATIN
     Indication: BLOOD CHOLESTEROL ABNORMAL
     Dosage: UNK
     Route: 048
  3. OMEPRAZOLE. [Concomitant]
     Active Substance: OMEPRAZOLE
     Indication: GASTROOESOPHAGEAL REFLUX DISEASE
     Dosage: UNK
     Route: 048
  4. ALPRAZOLAM. [Concomitant]
     Active Substance: ALPRAZOLAM
     Indication: HYPERTENSION
     Dosage: UNK
     Route: 048
  5. AMLODIPINE BENAZEPRIL [Concomitant]
     Active Substance: AMLODIPINE BESYLATE\BENAZEPRIL HYDROCHLORIDE
     Indication: HYPERTENSION
     Dosage: TOTAL DAILY DOSE (5/10 MG)
     Route: 048
  6. AZILECT [Concomitant]
     Active Substance: RASAGILINE MESYLATE
     Indication: PARKINSON^S DISEASE
     Dosage: UNK
     Route: 048
     Dates: start: 2010
  7. MUPIROCIN. [Suspect]
     Active Substance: MUPIROCIN
     Dosage: UNK, BID
     Route: 045
     Dates: start: 20171103, end: 20171104
  8. CARBIDOPA LEVODOPA [Concomitant]
     Active Substance: CARBIDOPA\LEVODOPA
     Indication: PARKINSON^S DISEASE
     Dosage: TOTAL DAILY DOSE (75MG/300MG)
     Route: 048
     Dates: start: 2010
  9. PYRIDOSTIGMINE [Concomitant]
     Active Substance: PYRIDOSTIGMINE
     Indication: HYPERTENSION
     Dosage: UNK
     Route: 048
  10. GABAPENTIN. [Concomitant]
     Active Substance: GABAPENTIN
     Indication: PRODUCT USED FOR UNKNOWN INDICATION
     Dosage: UNK, PRN (3?5 TIMES DAILY)FOR NERVE ENDINGS
     Route: 048

REACTIONS (5)
  - Epistaxis [Recovered/Resolved]
  - Incorrect route of drug administration [Unknown]
  - Off label use [Unknown]
  - Product use in unapproved indication [Not Recovered/Not Resolved]
  - Incorrect drug administration duration [Unknown]

NARRATIVE: CASE EVENT DATE: 2017
